FAERS Safety Report 4470856-5 (Version None)
Quarter: 2004Q4

REPORT INFORMATION
  Report Type: 
  Country: None (occurrence: None)
  Receive Date: 20041011
  Receipt Date: 20041004
  Transmission Date: 20050328
  Serious: Yes (Life-Threatening, Hospitalization)
  Sender: FDA-Public Use
  Company Number: PHBS2004US13310

PATIENT
  Age: 5 Year

DRUGS (1)
  1. CLOZAPINE [Suspect]
     Indication: MEDICATION ERROR
     Dosage: 200 MG/D
     Route: 048

REACTIONS (13)
  - ACCIDENTAL EXPOSURE [None]
  - ATAXIA [None]
  - DRUG TOXICITY [None]
  - HYPOTONIA [None]
  - INTUBATION [None]
  - LOSS OF CONSCIOUSNESS [None]
  - MENTAL STATUS CHANGES [None]
  - MUSCLE RIGIDITY [None]
  - MYOCLONUS [None]
  - NYSTAGMUS [None]
  - RESPIRATORY DEPRESSION [None]
  - TONGUE PARALYSIS [None]
  - TORTICOLLIS [None]
